FAERS Safety Report 7011476-8 (Version None)
Quarter: 2010Q3

REPORT INFORMATION
  Report Type: 
  Country: None (occurrence: None)
  Receive Date: 20100923
  Receipt Date: 20090120
  Transmission Date: 20110219
  Serious: No
  Sender: FDA-Public Use
  Company Number: US-WYE-H07822809

PATIENT

DRUGS (1)
  1. PREMARIN [Suspect]

REACTIONS (2)
  - CONDITION AGGRAVATED [None]
  - VULVOVAGINAL DISCOMFORT [None]
